FAERS Safety Report 5018829-8 (Version None)
Quarter: 2006Q2

REPORT INFORMATION
  Report Type: 
  Country: None (occurrence: None)
  Receive Date: 20060530
  Receipt Date: 20060515
  Transmission Date: 20061013
  Serious: Yes (Other)
  Sender: FDA-Public Use
  Company Number: 224041

PATIENT
  Age: 63 Year
  Sex: Male
  Weight: 53.5 kg

DRUGS (17)
  1. AVASTIN [Suspect]
     Indication: COLORECTAL CANCER
     Dosage: 5 MG/KG, Q2W, INTRAVENOUS
     Route: 042
     Dates: end: 20060407
  2. XELODA [Concomitant]
  3. OXALIPLATIN (OXALIPLATIN) [Concomitant]
  4. DILAUDID [Concomitant]
  5. FENTANYL (FENTANYL CITRATE) [Concomitant]
  6. THEOPHYLLINE [Concomitant]
  7. PREDNISONE TAB [Concomitant]
  8. ALBUTEROL (ALBUTEROL/ALBUTEROL SULFATE) [Concomitant]
  9. FOSAMAX [Concomitant]
  10. PREVACID [Concomitant]
  11. ARANESP [Concomitant]
  12. REGLAN [Concomitant]
  13. RITALIN [Concomitant]
  14. LEXAPRO [Concomitant]
  15. PHENERGAN (PROMETHAZINE HYDROCHLORIDE) [Concomitant]
  16. MARINOL [Concomitant]
  17. DEPO-TESTOTERONE (TESTOSTERONE CYPIONATE) [Concomitant]

REACTIONS (17)
  - ALANINE AMINOTRANSFERASE INCREASED [None]
  - ASPARTATE AMINOTRANSFERASE INCREASED [None]
  - BLOOD ALBUMIN DECREASED [None]
  - BLOOD CALCIUM DECREASED [None]
  - DIPLOPIA [None]
  - DIZZINESS [None]
  - HAEMATOCRIT DECREASED [None]
  - HAEMOGLOBIN DECREASED [None]
  - HEADACHE [None]
  - HYPERTENSION [None]
  - NAUSEA [None]
  - NERVOUSNESS [None]
  - PERICARDIAL EFFUSION [None]
  - REVERSIBLE POSTERIOR LEUKOENCEPHALOPATHY SYNDROME [None]
  - VISION BLURRED [None]
  - VISUAL DISTURBANCE [None]
  - VOMITING [None]
